FAERS Safety Report 16920350 (Version 6)
Quarter: 2020Q1

REPORT INFORMATION
  Report Type: Spontaneous
  Country: JP (occurrence: JP)
  Receive Date: 20191015
  Receipt Date: 20200207
  Transmission Date: 20200409
  Serious: Yes (Hospitalization, Other)
  Sender: FDA-Public Use
  Company Number: JP-AMGEN-JPNSP2019169108

PATIENT
  Age: 88 Year
  Sex: Female
  Weight: 55 kg

DRUGS (10)
  1. REBAMIPIDE [Concomitant]
     Active Substance: REBAMIPIDE
     Indication: BACK PAIN
     Dosage: 1 DOSAGE FORM, BID
     Route: 065
     Dates: start: 20190705, end: 20190903
  2. TICLOPIDINE [Suspect]
     Active Substance: TICLOPIDINE
     Indication: CEREBRAL INFARCTION
     Dosage: 1 DOSAGE FORM, QD
     Route: 065
  3. TARLIGE [Concomitant]
     Active Substance: MIROGABALIN BESYLATE
     Indication: BACK PAIN
     Dosage: 1 DOSAGE FORM, BID
     Route: 065
     Dates: start: 20190705, end: 20190903
  4. NIFEDIPINE. [Concomitant]
     Active Substance: NIFEDIPINE
     Indication: HYPERTENSION
     Dosage: 1 DOSAGE FORM, QD
     Dates: start: 20190903
  5. AMVALO [Suspect]
     Active Substance: AMLODIPINE BESYLATE\VALSARTAN
     Indication: HYPERTENSION
     Dosage: 1 DOSAGE FORM, QD
     Route: 065
     Dates: end: 20190903
  6. EDIROL [Suspect]
     Active Substance: ELDECALCITOL
     Indication: OSTEOPOROSIS
     Dosage: 1 DOSAGE FORM, QD
     Route: 065
     Dates: end: 20191003
  7. CELECOX [Concomitant]
     Active Substance: CELECOXIB
     Indication: BACK PAIN
     Dosage: 1 DOSAGE FORM, BID
     Route: 065
     Dates: start: 20190705, end: 20190903
  8. EVENITY [Suspect]
     Active Substance: ROMOSOZUMAB-AQQG
     Indication: OSTEOPOROSIS
     Dosage: 210 MILLIGRAM, QMO
     Route: 058
     Dates: start: 20190705, end: 20190903
  9. TOCOPHEROL [Suspect]
     Active Substance: TOCOPHEROL
     Indication: HYPERLIPIDAEMIA
     Dosage: 1 DOSAGE FORM, BID
     Route: 065
     Dates: end: 20191003
  10. TRICHLORMETHIAZIDE [Suspect]
     Active Substance: TRICHLORMETHIAZIDE
     Indication: HYPERTENSION
     Dosage: 1 DOSAGE FORM, QD
     Route: 065
     Dates: end: 20190903

REACTIONS (1)
  - Erythema multiforme [Recovering/Resolving]
